FAERS Safety Report 24670023 (Version 1)
Quarter: 2024Q4

REPORT INFORMATION
  Report Type: Spontaneous
  Country: KR (occurrence: KR)
  Receive Date: 20241127
  Receipt Date: 20241127
  Transmission Date: 20250115
  Serious: Yes (Other)
  Sender: GLAND PHARMA LTD
  Company Number: KR-GLANDPHARMA-KR-2024GLNLIT01005

PATIENT
  Age: 24 Year
  Sex: Female

DRUGS (1)
  1. FLUOROURACIL [Suspect]
     Active Substance: FLUOROURACIL
     Indication: Conjunctival bleb
     Route: 057

REACTIONS (2)
  - Cataract [Recovered/Resolved]
  - Product use in unapproved indication [Unknown]
